FAERS Safety Report 24169650 (Version 2)
Quarter: 2024Q3

REPORT INFORMATION
  Report Type: Spontaneous
  Country: AM (occurrence: AM)
  Receive Date: 20240802
  Receipt Date: 20240816
  Transmission Date: 20241017
  Serious: Yes (Death)
  Sender: ROCHE
  Company Number: AM-ROCHE-10000035037

PATIENT
  Age: 46 Year
  Sex: Male
  Weight: 79 kg

DRUGS (1)
  1. ALECENSA [Suspect]
     Active Substance: ALECTINIB HYDROCHLORIDE
     Indication: Non-small cell lung cancer
     Route: 048
     Dates: start: 20240606

REACTIONS (2)
  - Haemoptysis [Fatal]
  - Haemorrhage [Fatal]

NARRATIVE: CASE EVENT DATE: 20240717
